FAERS Safety Report 21457361 (Version 2)
Quarter: 2022Q4

REPORT INFORMATION
  Report Type: Spontaneous
  Country: JP (occurrence: JP)
  Receive Date: 20221014
  Receipt Date: 20221213
  Transmission Date: 20230112
  Serious: Yes (Congenital Anomaly)
  Sender: FDA-Public Use
  Company Number: JP-ELI_LILLY_AND_COMPANY-JP202210000925

PATIENT
  Age: 0 Year

DRUGS (12)
  1. LYUMJEV [Suspect]
     Active Substance: INSULIN LISPRO-AABC
     Indication: Gestational diabetes
     Dosage: UNK, DAILY
     Route: 064
     Dates: start: 20220404
  2. LYUMJEV [Suspect]
     Active Substance: INSULIN LISPRO-AABC
     Indication: Gestational diabetes
     Dosage: UNK, DAILY
     Route: 064
     Dates: start: 20220404
  3. LEVEMIR [Concomitant]
     Active Substance: INSULIN DETEMIR
     Indication: Gestational diabetes
     Dosage: UNK, DAILY
     Route: 064
     Dates: start: 20220331, end: 20220712
  4. LEVEMIR [Concomitant]
     Active Substance: INSULIN DETEMIR
     Indication: Gestational diabetes
     Dosage: UNK, DAILY
     Route: 064
     Dates: start: 20220331, end: 20220712
  5. FEXOFENADINE HYDROCHLORIDE [Concomitant]
     Active Substance: FEXOFENADINE HYDROCHLORIDE
     Indication: Rhinitis allergic
     Dosage: 60 MG, DAILY
     Route: 064
     Dates: start: 20220405, end: 20220427
  6. FEXOFENADINE HYDROCHLORIDE [Concomitant]
     Active Substance: FEXOFENADINE HYDROCHLORIDE
     Indication: Rhinitis allergic
     Dosage: 60 MG, DAILY
     Route: 064
     Dates: start: 20220405, end: 20220427
  7. FERROUS SULFATE [Concomitant]
     Active Substance: FERROUS SULFATE
     Indication: Iron deficiency anaemia
     Dosage: 105 MG, DAILY
     Route: 064
     Dates: start: 20220406, end: 20220427
  8. FERROUS SULFATE [Concomitant]
     Active Substance: FERROUS SULFATE
     Indication: Iron deficiency anaemia
     Dosage: 105 MG, DAILY
     Route: 064
     Dates: start: 20220406, end: 20220427
  9. PENICILLIN G POTASSIUM [Concomitant]
     Active Substance: PENICILLIN G POTASSIUM
     Indication: Syphilis
     Dosage: 24000000 INTERNATIONAL UNIT, DAILY
     Route: 064
     Dates: start: 20220401, end: 20220413
  10. PENICILLIN G POTASSIUM [Concomitant]
     Active Substance: PENICILLIN G POTASSIUM
     Indication: Syphilis
     Dosage: 24000000 INTERNATIONAL UNIT, DAILY
     Route: 064
     Dates: start: 20220401, end: 20220413
  11. MAGNESIUM OXIDE [Concomitant]
     Active Substance: MAGNESIUM OXIDE
     Indication: Constipation
     Dosage: 750 MG, DAILY
     Route: 064
     Dates: start: 20220607, end: 20220620
  12. MAGNESIUM OXIDE [Concomitant]
     Active Substance: MAGNESIUM OXIDE
     Indication: Constipation
     Dosage: 750 MG, DAILY
     Route: 064
     Dates: start: 20220607, end: 20220620

REACTIONS (3)
  - Accessory auricle [Unknown]
  - Foetal exposure during pregnancy [Recovered/Resolved]
  - Low birth weight baby [Unknown]

NARRATIVE: CASE EVENT DATE: 20220713
